FAERS Safety Report 13087839 (Version 1)
Quarter: 2017Q1

REPORT INFORMATION
  Report Type: Spontaneous
  Country: FR (occurrence: FR)
  Receive Date: 20170105
  Receipt Date: 20170105
  Transmission Date: 20170428
  Serious: Yes (Hospitalization)
  Sender: FDA-Public Use
  Company Number: FR-SA-2017SA001131

PATIENT
  Age: 28 Year
  Sex: Female

DRUGS (3)
  1. PRORHINEL [Concomitant]
     Indication: RHINITIS
  2. CLOMID [Suspect]
     Active Substance: CLOMIPHENE CITRATE
     Indication: INFERTILITY
     Route: 048
     Dates: start: 20161017, end: 20161023
  3. PERNAZENE [Suspect]
     Active Substance: TYMAZOLINE
     Indication: RHINITIS
     Dosage: FORM:SOLUTION FOR NASAL SPRAY
     Route: 045
     Dates: start: 201611

REACTIONS (2)
  - Ischaemic stroke [Recovered/Resolved]
  - Hemiparesis [Recovered/Resolved]

NARRATIVE: CASE EVENT DATE: 20161122
